FAERS Safety Report 8141025-2 (Version None)
Quarter: 2012Q1

REPORT INFORMATION
  Report Type: 
  Country: None (occurrence: None)
  Receive Date: 20120213
  Receipt Date: 20120201
  Transmission Date: 20120608
  Serious: Yes (Death)
  Sender: FDA-Public Use
  Company Number: 2012AR0057

PATIENT
  Age: 1 Year

DRUGS (1)
  1. ORFADIN [Suspect]
     Indication: TYROSINAEMIA
     Dosage: 18 MG
     Dates: start: 20111014

REACTIONS (1)
  - PNEUMONIA ASPIRATION [None]
